FAERS Safety Report 12075965 (Version 1)
Quarter: 2016Q1

REPORT INFORMATION
  Report Type: Spontaneous
  Country: IT (occurrence: IT)
  Receive Date: 20160214
  Receipt Date: 20160214
  Transmission Date: 20160526
  Serious: Yes (Death)
  Sender: FDA-Public Use
  Company Number: IT-ROCHE-1708878

PATIENT
  Age: 73 Year
  Sex: Female

DRUGS (15)
  1. RATACAND [Concomitant]
     Active Substance: CANDESARTAN
     Dosage: ^8 MG TABLETS^ 7 TABLETS
     Route: 048
  2. MEPRAL [Concomitant]
     Active Substance: OMEPRAZOLE SODIUM
     Dosage: 14 CAPSULES
     Route: 048
  3. PROVISACOR [Concomitant]
     Active Substance: ROSUVASTATIN
     Dosage: 10 MG FILM-COATED TABLETS^ 7 TABLETS
     Route: 048
  4. LASIX [Concomitant]
     Active Substance: FUROSEMIDE
     Dosage: 25 MG TABLET, 30 TABLET
     Route: 048
  5. NATECAL D3 [Concomitant]
     Active Substance: CALCIUM CARBONATE\CHOLECALCIFEROL
     Route: 048
  6. ASCRIPTIN [Concomitant]
     Active Substance: ASPIRIN
     Dosage: 20 SCORED TABLETS
     Route: 048
  7. CONCOR [Concomitant]
     Active Substance: BISOPROLOL FUMARATE
     Dosage: 10 MG TABLET, 28 TABLET
     Route: 048
  8. FOLIDAR [Concomitant]
     Dosage: 15 MG 30 TABLETS
     Route: 048
  9. LUVION (ITALY) [Concomitant]
     Route: 048
  10. ROACTEMRA [Suspect]
     Active Substance: TOCILIZUMAB
     Indication: RHEUMATOID ARTHRITIS
     Route: 058
     Dates: start: 20151207
  11. PATROL [Concomitant]
     Active Substance: ACETAMINOPHEN\TRAMADOL HYDROCHLORIDE
     Dosage: ^37.5 MG + 325 MG FILM-COATED TABLETS^ 30 TABLETS
     Route: 048
  12. ROACTEMRA [Suspect]
     Active Substance: TOCILIZUMAB
     Indication: RHEUMATOID ARTHRITIS
     Route: 042
  13. DELTACORTENE [Concomitant]
     Active Substance: PREDNISONE
     Dosage: 5 MG TABLETS , 10 TABLETS
     Route: 048
  14. LOBIVON [Concomitant]
     Active Substance: NEBIVOLOL HYDROCHLORIDE
     Dosage: 5 MG 28 TABLETS
     Route: 048
  15. METHOTREXATE [Concomitant]
     Active Substance: METHOTREXATE
     Dosage: 2.5 MG TABLETS, 25 TABLETS
     Route: 048

REACTIONS (1)
  - Aortic aneurysm rupture [Fatal]

NARRATIVE: CASE EVENT DATE: 20151216
